FAERS Safety Report 15312817 (Version 1)
Quarter: 2018Q3

REPORT INFORMATION
  Report Type: Spontaneous
  Country: US (occurrence: US)
  Receive Date: 20180823
  Receipt Date: 20180823
  Transmission Date: 20181010
  Serious: No
  Sender: FDA-Public Use
  Company Number: US-SA-2018SA203175

PATIENT
  Sex: Female

DRUGS (1)
  1. GOLD BOND ULTIMATE DIABETICS [Suspect]
     Active Substance: DIMETHICONE\PETROLATUM
     Indication: HYPERKERATOSIS

REACTIONS (3)
  - Drug ineffective [Unknown]
  - Skin fissures [Unknown]
  - Skin exfoliation [Unknown]
